FAERS Safety Report 14222481 (Version 2)
Quarter: 2017Q4

REPORT INFORMATION
  Report Type: Spontaneous
  Country: US (occurrence: US)
  Receive Date: 20171124
  Receipt Date: 20171228
  Transmission Date: 20180321
  Serious: No
  Sender: FDA-Public Use
  Company Number: US-009507513-1711USA008515

PATIENT
  Sex: Male

DRUGS (1)
  1. DULERA [Suspect]
     Active Substance: FORMOTEROL FUMARATE DIHYDRATE\MOMETASONE FUROATE
     Dosage: UNK (STRENGTH 200/5 MICROGRAM)
     Route: 055

REACTIONS (6)
  - Product container issue [Unknown]
  - Drug dose omission [Unknown]
  - No adverse event [Unknown]
  - Underdose [Unknown]
  - Product use issue [Unknown]
  - Product quality issue [Unknown]
